FAERS Safety Report 4555482-1 (Version None)
Quarter: 2005Q1

REPORT INFORMATION
  Report Type: 
  Country: None (occurrence: None)
  Receive Date: 20050118
  Receipt Date: 20050118
  Transmission Date: 20050727
  Serious: Yes (Other)
  Sender: FDA-Public Use
  Company Number: None

PATIENT
  Age: 52 Year
  Sex: Female
  Weight: 72.5755 kg

DRUGS (5)
  1. CORICIDIN D SRT [Suspect]
     Indication: MULTIPLE ALLERGIES
  2. ANTIHYPERTENSIVE AGENT [Concomitant]
  3. PREMPRO [Concomitant]
  4. ALBUTEROL [Concomitant]
  5. ALLEGRA [Concomitant]

REACTIONS (8)
  - DEPRESSION [None]
  - HAEMORRHAGIC STROKE [None]
  - HEADACHE [None]
  - HEMIANOPIA HOMONYMOUS [None]
  - PAIN [None]
  - PARAESTHESIA [None]
  - TINNITUS [None]
  - TRANSIENT ISCHAEMIC ATTACK [None]
